FAERS Safety Report 26107138 (Version 1)
Quarter: 2025Q4

REPORT INFORMATION
  Report Type: Spontaneous
  Country: US (occurrence: None)
  Receive Date: 20251126
  Receipt Date: 20251126
  Transmission Date: 20260117
  Serious: Yes (Other)
  Sender: FDA-CTU
  Company Number: None

PATIENT
  Age: 46 Year
  Sex: Female

DRUGS (4)
  1. CYANOCOBALAMIN\NALTREXONE [Suspect]
     Active Substance: CYANOCOBALAMIN\NALTREXONE
     Indication: Weight decreased
     Dosage: DAILY ORAL ?
     Route: 048
     Dates: start: 20251027, end: 20251121
  2. BUPROPION [Suspect]
     Active Substance: BUPROPION
     Dates: start: 20251027, end: 20251119
  3. METFORMIN [Suspect]
     Active Substance: METFORMIN HYDROCHLORIDE
     Dates: end: 20251126
  4. ONDANSETRON [Suspect]
     Active Substance: ONDANSETRON

REACTIONS (3)
  - Hypersensitivity [None]
  - Therapy cessation [None]
  - Skin exfoliation [None]

NARRATIVE: CASE EVENT DATE: 20251119
